FAERS Safety Report 7854257-5 (Version None)
Quarter: 2011Q4

REPORT INFORMATION
  Report Type: 
  Country: None (occurrence: None)
  Receive Date: 20111026
  Receipt Date: 20111018
  Transmission Date: 20120403
  Serious: Yes (Other)
  Sender: FDA-Public Use
  Company Number: US-ASTRAZENECA-2011SE13831

PATIENT
  Age: 78 Year
  Sex: Female

DRUGS (6)
  1. ATACAND HCT [Suspect]
     Dosage: 16-12.5 MG, ONE EVERY DAY
     Route: 048
  2. ATACAND HCT [Suspect]
     Dosage: 32-25 MG, TABS ONE  PO EVERY DAY
     Route: 048
  3. PRILOSEC [Suspect]
     Route: 048
  4. GLYBURIDE [Concomitant]
     Route: 048
  5. SYNTHROID [Concomitant]
  6. NEXIUM [Suspect]
     Route: 048

REACTIONS (8)
  - RECURRENT CANCER [None]
  - DRUG HYPERSENSITIVITY [None]
  - AMNESIA [None]
  - HYPERTENSION [None]
  - THROAT LESION [None]
  - HEADACHE [None]
  - VOMITING [None]
  - DRUG DOSE OMISSION [None]
